FAERS Safety Report 9719173 (Version 2)
Quarter: 2015Q2

REPORT INFORMATION
  Report Type: Spontaneous
  Country: GR (occurrence: GR)
  Receive Date: 20131127
  Receipt Date: 20150522
  Transmission Date: 20150821
  Serious: Yes (Hospitalization)
  Sender: FDA-Public Use
  Company Number: PHHY2013GR133355

PATIENT
  Age: 64 Year
  Sex: Male

DRUGS (3)
  1. MIRTAZAPINE. [Concomitant]
     Active Substance: MIRTAZAPINE
     Indication: DEPRESSION
     Dosage: 30 MG, QD
     Route: 048
  2. METHOTREXATE [Suspect]
     Active Substance: METHOTREXATE
     Indication: PSORIASIS
     Dosage: 10 MG, TWO WEEKLY DOSES
     Route: 042
  3. INFLIXIMAB [Suspect]
     Active Substance: INFLIXIMAB
     Indication: PSORIASIS
     Dosage: 5 MG/KG
     Route: 042

REACTIONS (14)
  - Cardiac failure [Recovered/Resolved]
  - Cough [Recovered/Resolved]
  - Jugular vein distension [Recovered/Resolved]
  - Dilatation ventricular [Recovered/Resolved]
  - Interstitial lung disease [Recovering/Resolving]
  - Pyrexia [Recovered/Resolved]
  - Computerised tomogram thorax abnormal [Recovered/Resolved]
  - Malaise [Recovered/Resolved]
  - Hypocapnia [Recovered/Resolved]
  - Drug ineffective [Unknown]
  - Dyspnoea exertional [Recovered/Resolved]
  - Left atrial dilatation [Recovered/Resolved]
  - Hypoxia [Recovered/Resolved]
  - Rales [Recovered/Resolved]
